FAERS Safety Report 14094430 (Version 1)
Quarter: 2017Q4

REPORT INFORMATION
  Report Type: Spontaneous
  Country: None (occurrence: TR)
  Receive Date: 20171016
  Receipt Date: 20171016
  Transmission Date: 20180321
  Serious: Yes (Other)
  Sender: FDA-Public Use
  Company Number: TR-LABORATOIRE HRA PHARMA-2030234

PATIENT
  Sex: Female

DRUGS (1)
  1. ELLA [Suspect]
     Active Substance: ULIPRISTAL ACETATE
     Indication: POST COITAL CONTRACEPTION
     Route: 048
     Dates: start: 20170824, end: 20170824

REACTIONS (4)
  - Uterine enlargement [Recovered/Resolved]
  - Menstruation delayed [Recovered/Resolved]
  - Uterine haemorrhage [Recovered/Resolved]
  - Pruritus genital [Recovered/Resolved]
